FAERS Safety Report 14776136 (Version 1)
Quarter: 2018Q2

REPORT INFORMATION
  Report Type: Spontaneous
  Country: US (occurrence: US)
  Receive Date: 20180418
  Receipt Date: 20180418
  Transmission Date: 20180711
  Serious: No
  Sender: FDA-Public Use
  Company Number: US-EISAI MEDICAL RESEARCH-EC-2018-037808

PATIENT
  Sex: Male

DRUGS (1)
  1. PANRETIN [Suspect]
     Active Substance: ALITRETINOIN
     Indication: KAPOSI^S SARCOMA
     Dosage: UNKNOWN
     Route: 061
     Dates: start: 2010

REACTIONS (2)
  - Product storage error [Unknown]
  - Drug effect decreased [Unknown]
